FAERS Safety Report 21918378 (Version 1)
Quarter: 2023Q1

REPORT INFORMATION
  Report Type: Report from Study
  Country: NL (occurrence: None)
  Receive Date: 20230127
  Receipt Date: 20230127
  Transmission Date: 20230418
  Serious: Yes (Hospitalization)
  Sender: FDA-Public Use
  Company Number: NL-ROCHE-3271261

PATIENT
  Age: 74 Year
  Sex: Female

DRUGS (10)
  1. ATEZOLIZUMAB [Suspect]
     Active Substance: ATEZOLIZUMAB
     Indication: Non-small cell lung cancer
     Dosage: NO OF CYCLES-11
     Route: 041
     Dates: start: 20211220
  2. BEVACIZUMAB [Suspect]
     Active Substance: BEVACIZUMAB
     Indication: Non-small cell lung cancer
     Dosage: NO OF CYCLES-04
     Route: 042
     Dates: start: 20211220, end: 20220228
  3. PACLITAXEL [Suspect]
     Active Substance: PACLITAXEL
     Indication: Non-small cell lung cancer
     Dosage: NO OF CYCLES-04
     Route: 042
     Dates: start: 20211220, end: 20220228
  4. CARBOPLATIN [Suspect]
     Active Substance: CARBOPLATIN
     Indication: Non-small cell lung cancer
     Dosage: NO OF CYCLES-04
     Route: 042
     Dates: start: 20211220, end: 20220228
  5. PREDNISONE [Concomitant]
     Active Substance: PREDNISONE
     Dates: start: 20220822
  6. PREDNISONE [Concomitant]
     Active Substance: PREDNISONE
     Dosage: 60MG PER DAY PLUS 30 MG PER DAY
     Dates: start: 20220823
  7. PREDNISONE [Concomitant]
     Active Substance: PREDNISONE
     Dates: start: 20220824
  8. PREDNISONE [Concomitant]
     Active Substance: PREDNISONE
     Dates: start: 20220824, end: 20220828
  9. PREDNISONE [Concomitant]
     Active Substance: PREDNISONE
     Dates: start: 20220829, end: 20220905
  10. FORMOTEROL [Concomitant]
     Active Substance: FORMOTEROL
     Dates: start: 20220824

REACTIONS (1)
  - Immune-mediated lung disease [Recovered/Resolved with Sequelae]

NARRATIVE: CASE EVENT DATE: 20220822
